FAERS Safety Report 5329868-1 (Version None)
Quarter: 2007Q2

REPORT INFORMATION
  Report Type: 
  Country: None (occurrence: None)
  Receive Date: 20070521
  Receipt Date: 20070510
  Transmission Date: 20071010
  Serious: Yes (Other)
  Sender: FDA-Public Use
  Company Number: US-GENENTECH-241606

PATIENT

DRUGS (2)
  1. BEVACIZUMAB [Suspect]
     Indication: RENAL CELL CARCINOMA STAGE UNSPECIFIED
  2. INTERFERON ALFA-2B [Concomitant]
     Indication: RENAL CELL CARCINOMA STAGE UNSPECIFIED

REACTIONS (2)
  - PROTEINURIA [None]
  - RENAL INJURY [None]
